FAERS Safety Report 7564970-5 (Version None)
Quarter: 2011Q2

REPORT INFORMATION
  Report Type: 
  Country: None (occurrence: None)
  Receive Date: 20110622
  Receipt Date: 20110310
  Transmission Date: 20111010
  Serious: Yes (Other)
  Sender: FDA-Public Use
  Company Number: US-MYLANLABS-2011S1004628

PATIENT
  Age: 63 Year
  Sex: Female

DRUGS (10)
  1. CLOZAPINE [Suspect]
     Route: 048
     Dates: end: 20110304
  2. DEPLIN [Concomitant]
  3. MELATONIN [Concomitant]
  4. LOPRESSOR [Concomitant]
  5. VITAMIN D [Concomitant]
  6. CLOZAPINE [Suspect]
     Route: 062
     Dates: end: 20110304
  7. CYMBALTA [Concomitant]
  8. ACTONEL [Concomitant]
  9. SYNTHROID [Concomitant]
  10. ZANTAC [Concomitant]

REACTIONS (1)
  - LEUKOPENIA [None]
